FAERS Safety Report 8438912-4 (Version None)
Quarter: 2012Q2

REPORT INFORMATION
  Report Type: 
  Country: None (occurrence: None)
  Receive Date: 20120615
  Receipt Date: 20120604
  Transmission Date: 20120825
  Serious: Yes (Hospitalization)
  Sender: FDA-Public Use
  Company Number: FR-VERTEX PHARMACEUTICALS INC.-000000000000000879

PATIENT
  Sex: Male
  Weight: 73 kg

DRUGS (12)
  1. ISRADIPINE [Concomitant]
     Indication: HYPERTENSION
  2. ACETAMINOPHEN [Concomitant]
  3. OMEPRAZOLE [Concomitant]
     Indication: GASTROOESOPHAGEAL REFLUX DISEASE
  4. OMIX [Concomitant]
     Indication: OEDEMA
  5. TELAPREVIR [Suspect]
     Indication: HEPATITIS C
     Dosage: DOSAGE FORM: TABLET
     Route: 048
     Dates: start: 20110524, end: 20110608
  6. COPEGUS [Concomitant]
     Indication: HEPATITIS C
     Dates: start: 20110524, end: 20110608
  7. PLAVIX [Concomitant]
     Indication: CARDIAC FAILURE
  8. BISOPROLOL FUMARATE [Concomitant]
     Indication: CARDIAC FAILURE
     Dates: end: 20111213
  9. LASIX [Concomitant]
     Indication: CARDIAC FAILURE
  10. NEO-MERCAZOLE TAB [Concomitant]
     Indication: HYPERTHYROIDISM
  11. RENITEC (ENALAPRIL) [Concomitant]
     Indication: HYPERTENSION
  12. PEGASYS [Concomitant]
     Indication: HEPATITIS C
     Dates: start: 20110524, end: 20110608

REACTIONS (1)
  - RENAL FAILURE [None]
